FAERS Safety Report 6929053-3 (Version None)
Quarter: 2010Q3

REPORT INFORMATION
  Report Type: 
  Country: None (occurrence: None)
  Receive Date: 20100817
  Receipt Date: 20100813
  Transmission Date: 20110219
  Serious: Yes (Death, Hospitalization)
  Sender: FDA-Public Use
  Company Number: BR-ABBOTT-10P-020-0663579-00

PATIENT
  Sex: Female
  Weight: 66 kg

DRUGS (3)
  1. HUMIRA [Suspect]
     Indication: RHEUMATOID ARTHRITIS
     Route: 058
     Dates: start: 20100501
  2. CONDROFLEX [Concomitant]
     Indication: RHEUMATOID ARTHRITIS
     Route: 048
  3. TECNOMET [Concomitant]
     Indication: RHEUMATOID ARTHRITIS
     Route: 048

REACTIONS (4)
  - DYSPNOEA [None]
  - FLUID INTAKE REDUCED [None]
  - LABILE BLOOD PRESSURE [None]
  - RENAL FAILURE [None]
